FAERS Safety Report 15264400 (Version 1)
Quarter: 2018Q3

REPORT INFORMATION
  Report Type: Spontaneous
  Country: US (occurrence: US)
  Receive Date: 20180722
  Receipt Date: 20180722
  Transmission Date: 20181010
  Serious: Yes (Hospitalization)
  Sender: FDA-Public Use
  Company Number: None

PATIENT
  Age: 65 Year
  Sex: Female
  Weight: 81.9 kg

DRUGS (9)
  1. VALSARTAN HCTZ [Suspect]
     Active Substance: HYDROCHLOROTHIAZIDE\VALSARTAN
     Indication: BLOOD PRESSURE MEASUREMENT
     Route: 048
  2. MONTELUKAST 10 MG [Concomitant]
     Active Substance: MONTELUKAST SODIUM
     Dates: start: 20050722, end: 20180722
  3. KLOR?CON M20 TAB [Concomitant]
     Dates: start: 19980722, end: 20180722
  4. HYDRALAZINE 50 MG [Concomitant]
     Dates: start: 19980722, end: 20180722
  5. METFORMIN [Concomitant]
     Active Substance: METFORMIN HYDROCHLORIDE
     Dates: start: 20050722, end: 20180722
  6. FLUTICASONE 50 MCG NASAL SPRAY [Concomitant]
     Dates: start: 20160722, end: 20180722
  7. PRAVASTATIN 20 MG [Concomitant]
     Active Substance: PRAVASTATIN
     Dates: start: 20170304, end: 20180722
  8. ALMODIPINE 5 MG [Concomitant]
     Dates: start: 19980722, end: 20180722
  9. VERAPAMIL ER 240 MG TAB [Concomitant]
     Dates: start: 19980722, end: 20180722

REACTIONS (3)
  - Abdominal distension [None]
  - Recalled product [None]
  - Abdominal pain [None]

NARRATIVE: CASE EVENT DATE: 20180718
